FAERS Safety Report 7041991-2 (Version None)
Quarter: 2010Q4

REPORT INFORMATION
  Report Type: 
  Country: None (occurrence: None)
  Receive Date: 20101013
  Receipt Date: 20100810
  Transmission Date: 20110411
  Serious: Yes (Hospitalization)
  Sender: FDA-Public Use
  Company Number: US-ASTRAZENECA-2010SE37390

PATIENT
  Age: 66 Year
  Sex: Female
  Weight: 40.8 kg

DRUGS (18)
  1. SYMBICORT [Suspect]
     Indication: CHRONIC OBSTRUCTIVE PULMONARY DISEASE
     Dosage: 160 MCG
     Route: 055
  2. CALCIUM WITH VITAMIN D [Concomitant]
  3. XANAX [Concomitant]
  4. ACTONEL [Concomitant]
  5. PROTONIX [Concomitant]
  6. MUCINEX [Concomitant]
  7. PREDNISONE [Concomitant]
  8. PAXIL [Concomitant]
  9. CARDIZEM [Concomitant]
  10. ZYRTEC [Concomitant]
  11. ASCORBIC ACID [Concomitant]
  12. ASPIRIN [Concomitant]
  13. THEOPHYLLINE [Concomitant]
  14. ZOPINEX [Concomitant]
  15. ATROVENT [Concomitant]
  16. FLONASE [Concomitant]
  17. LASIX [Concomitant]
  18. COUMADIN [Concomitant]

REACTIONS (4)
  - EYE DISORDER [None]
  - THROAT IRRITATION [None]
  - TREMOR [None]
  - UPPER RESPIRATORY TRACT INFECTION [None]
